FAERS Safety Report 10758947 (Version 3)
Quarter: 2015Q2

REPORT INFORMATION
  Report Type: Spontaneous
  Country: US (occurrence: US)
  Receive Date: 20150203
  Receipt Date: 20150512
  Transmission Date: 20150821
  Serious: Yes (Other)
  Sender: FDA-Public Use
  Company Number: US-PFIZER INC-2015041330

PATIENT
  Age: 73 Year
  Sex: Male
  Weight: 75 kg

DRUGS (11)
  1. LEVOTHYROXINE [Concomitant]
     Active Substance: LEVOTHYROXINE
     Dosage: 150 ?G, UNK
  2. CARVEDILOL. [Concomitant]
     Active Substance: CARVEDILOL
     Dosage: 25 MG, UNK
  3. DIOVAN [Concomitant]
     Active Substance: VALSARTAN
     Dosage: 160 MG, UNK
  4. OXYCODONE/PARACETAMOL [Concomitant]
     Dosage: 7.5 MG-325 MG
  5. MEDROL (PAK) [Concomitant]
     Dosage: 4 MG DOSE PACK
  6. CYCLOBENZAPRINE [Concomitant]
     Active Substance: CYCLOBENZAPRINE
     Dosage: 10 MG, UNK
  7. OMEPRAZOLE. [Concomitant]
     Active Substance: OMEPRAZOLE
     Dosage: 20 MG, UNK
  8. SIMVASTATIN. [Concomitant]
     Active Substance: SIMVASTATIN
     Dosage: 40 MG, UNK
  9. TORISEL [Suspect]
     Active Substance: TEMSIROLIMUS
     Indication: RENAL CELL CARCINOMA
     Dosage: UNK, WEEKLY
     Route: 042
     Dates: start: 201410, end: 20150115
  10. VITAMIN B6 [Concomitant]
     Active Substance: PYRIDOXINE HYDROCHLORIDE
     Dosage: 200 MG, UNK
  11. SYNTHROID [Concomitant]
     Active Substance: LEVOTHYROXINE SODIUM
     Dosage: 100 ?G, DAILY

REACTIONS (17)
  - Abdominal pain [Unknown]
  - Blood triglycerides increased [Unknown]
  - Dyspnoea exertional [Unknown]
  - Anaemia [Recovering/Resolving]
  - Pneumonia [Unknown]
  - Chest pain [Recovering/Resolving]
  - Weight decreased [Unknown]
  - Decreased appetite [Recovered/Resolved]
  - Blood glucose increased [Unknown]
  - Upper respiratory tract infection [Unknown]
  - Tooth disorder [Unknown]
  - Disease progression [Unknown]
  - Lumbar spinal stenosis [Unknown]
  - Pruritus [Unknown]
  - Chronic kidney disease [Unknown]
  - Renal cell carcinoma [Unknown]
  - Back pain [Unknown]

NARRATIVE: CASE EVENT DATE: 201411
